FAERS Safety Report 5648102-6 (Version None)
Quarter: 2008Q1

REPORT INFORMATION
  Report Type: 
  Country: None (occurrence: None)
  Receive Date: 20080229
  Receipt Date: 20080229
  Transmission Date: 20080703
  Serious: Yes (Hospitalization)
  Sender: FDA-Public Use
  Company Number: None

PATIENT
  Sex: Male
  Weight: 62 kg

DRUGS (7)
  1. TEMOZOLOMIDE [Suspect]
     Indication: ACUTE MYELOID LEUKAEMIA
     Dosage: 250MG QD PO
     Route: 048
     Dates: start: 20020201, end: 20080201
  2. TEMOZOLOMIDE [Suspect]
     Dosage: 100MG QD PO
     Route: 048
     Dates: start: 20020201, end: 20080201
  3. DILTIAZEM [Concomitant]
  4. OMEPRAZOLE [Concomitant]
  5. SENNA [Concomitant]
  6. DULCOLAX [Concomitant]
  7. MILK OF MAGNESIA [Concomitant]

REACTIONS (2)
  - ATRIAL FIBRILLATION [None]
  - FEBRILE NEUTROPENIA [None]
